FAERS Safety Report 8251860-8 (Version None)
Quarter: 2012Q2

REPORT INFORMATION
  Report Type: 
  Country: None (occurrence: None)
  Receive Date: 20120402
  Receipt Date: 20120322
  Transmission Date: 20120825
  Serious: No
  Sender: FDA-Public Use
  Company Number: US-PFIZER INC-2012073617

PATIENT

DRUGS (2)
  1. DETROL LA [Suspect]
     Dosage: 4 MG, 2X/DAY
  2. DETROL LA [Suspect]
     Dosage: 4 MG, DAILY

REACTIONS (1)
  - DRUG INEFFECTIVE [None]
